FAERS Safety Report 9691352 (Version 1)
Quarter: 2013Q4

REPORT INFORMATION
  Report Type: Spontaneous
  Country: US (occurrence: US)
  Receive Date: 20131115
  Receipt Date: 20131115
  Transmission Date: 20140711
  Serious: No
  Sender: FDA-Public Use
  Company Number: US-PFIZER INC-2013325953

PATIENT
  Age: 66 Year
  Sex: Female
  Weight: 77.1 kg

DRUGS (3)
  1. CHANTIX [Suspect]
     Indication: SMOKING CESSATION THERAPY
     Dosage: 0.5 MG, 1X/DAY
     Route: 048
     Dates: start: 201309, end: 2013
  2. CHANTIX [Suspect]
     Dosage: UNK
     Route: 048
     Dates: start: 2013, end: 2013
  3. CHANTIX [Suspect]
     Dosage: 1 MG, 2X/DAY
     Route: 048
     Dates: start: 2013, end: 20131104

REACTIONS (4)
  - Nausea [Recovered/Resolved]
  - Diarrhoea [Recovered/Resolved]
  - Malaise [Recovered/Resolved]
  - Influenza [Recovered/Resolved]
